FAERS Safety Report 8837311 (Version 1)
Quarter: 2012Q4

REPORT INFORMATION
  Report Type: 
  Country: US (occurrence: US)
  Receive Date: 20121011
  Receipt Date: 20121011
  Transmission Date: 20130627
  Serious: Yes (Hospitalization)
  Sender: FDA-Public Use
  Company Number: US-ROCHE-1124140

PATIENT

DRUGS (2)
  1. NUTROPIN AQ [Suspect]
     Indication: RENAL FAILURE CHRONIC
     Route: 058
  2. NUTROPIN AQ [Suspect]
     Indication: AZOTAEMIA

REACTIONS (2)
  - Device related infection [Unknown]
  - Cardiac murmur [Unknown]
